FAERS Safety Report 17476484 (Version 1)
Quarter: 2020Q1

REPORT INFORMATION
  Report Type: Spontaneous
  Country: GB (occurrence: GB)
  Receive Date: 20200228
  Receipt Date: 20200228
  Transmission Date: 20200409
  Serious: Yes (Death, Congenital Anomaly, Other)
  Sender: FDA-Public Use
  Company Number: GB-B.I. PHARMACEUTICALS,INC./RIDGEFIELD-2004-UK-00595UK

PATIENT

DRUGS (3)
  1. VIRAMUNE [Suspect]
     Active Substance: NEVIRAPINE
     Indication: HIV INFECTION
     Dosage: 400 MG, ADDITIONAL INFO: FREQUENCY OF PRODUCT : 1D
     Route: 064
     Dates: start: 20000122
  2. DIDANOSINE. [Suspect]
     Active Substance: DIDANOSINE
     Indication: HIV INFECTION
     Dosage: 400 MG, ADDITIONAL INFO: FREQUENCY OF PRODUCT : 1D
     Route: 064
     Dates: start: 20040122
  3. RETROVIR [Suspect]
     Active Substance: ZIDOVUDINE
     Indication: HIV INFECTION
     Dosage: 250 MG , ADDITIONAL INFO: FREQUENCY OF PRODUCT : 2D
     Route: 064
     Dates: start: 20000122

REACTIONS (4)
  - Congenital central nervous system anomaly [Fatal]
  - Stillbirth [Fatal]
  - Pulmonary hypoplasia [Fatal]
  - Foetal exposure during pregnancy [Unknown]

NARRATIVE: CASE EVENT DATE: 200406
